FAERS Safety Report 24121489 (Version 3)
Quarter: 2025Q3

REPORT INFORMATION
  Report Type: Report from Study
  Country: EU (occurrence: EU)
  Receive Date: 20240722
  Receipt Date: 20250801
  Transmission Date: 20251021
  Serious: Yes (Other)
  Sender: PFIZER
  Company Number: EU-TAKEDA-2021TUS012832

PATIENT
  Age: 71 Year
  Sex: Female
  Weight: 68 kg

DRUGS (4)
  1. ADCETRIS [Suspect]
     Active Substance: BRENTUXIMAB VEDOTIN
     Indication: Cutaneous lymphoma
     Dosage: 100 MILLIGRAM, Q3WEEKS
     Route: 042
     Dates: start: 20201124
  2. ADCETRIS [Suspect]
     Active Substance: BRENTUXIMAB VEDOTIN
     Indication: Cutaneous T-cell lymphoma
     Route: 042
     Dates: start: 20201127
  3. ADCETRIS [Suspect]
     Active Substance: BRENTUXIMAB VEDOTIN
     Route: 042
  4. ADCETRIS [Suspect]
     Active Substance: BRENTUXIMAB VEDOTIN
     Dosage: 107 MILLIGRAM, Q3WEEKS
     Route: 042

REACTIONS (7)
  - Polyneuropathy [Not Recovered/Not Resolved]
  - Otitis media [Recovered/Resolved]
  - Osteoarthritis [Unknown]
  - Oral herpes [Unknown]
  - Arthralgia [Unknown]
  - Cataract subcapsular [Unknown]
  - Conjunctivitis [Unknown]

NARRATIVE: CASE EVENT DATE: 20210202
